FAERS Safety Report 4312050-4 (Version None)
Quarter: 2004Q1

REPORT INFORMATION
  Report Type: 
  Country: None (occurrence: None)
  Receive Date: 20040303
  Receipt Date: 20040224
  Transmission Date: 20041129
  Serious: Yes (Other)
  Sender: FDA-Public Use
  Company Number: 2004200824FR

PATIENT
  Sex: Female

DRUGS (2)
  1. CLINDAMYCIN HCL [Suspect]
     Indication: STAPHYLOCOCCAL INFECTION
  2. ZYVOXID (LINEZOLID) TABLET [Suspect]
     Indication: STAPHYLOCOCCAL INFECTION

REACTIONS (2)
  - HYPERSENSITIVITY [None]
  - STEVENS-JOHNSON SYNDROME [None]
